FAERS Safety Report 10213683 (Version 1)
Quarter: 2014Q2

REPORT INFORMATION
  Report Type: Spontaneous
  Country: JP (occurrence: JP)
  Receive Date: 20140603
  Receipt Date: 20140603
  Transmission Date: 20141212
  Serious: Yes (Other)
  Sender: FDA-Public Use
  Company Number: JP-MYLANLABS-2014S1011939

PATIENT
  Age: 17 Year
  Sex: Female

DRUGS (2)
  1. HYDROXYZINE [Suspect]
     Dosage: 50MG
     Route: 030
  2. BENZYL ALCOHOL [Suspect]

REACTIONS (2)
  - Skin necrosis [Recovered/Resolved with Sequelae]
  - Injection site extravasation [Recovered/Resolved with Sequelae]
